FAERS Safety Report 7755855-X (Version None)
Quarter: 2011Q3

REPORT INFORMATION
  Report Type: 
  Country: None (occurrence: None)
  Receive Date: 20110916
  Receipt Date: 20110905
  Transmission Date: 20111222
  Serious: Yes (Other)
  Sender: FDA-Public Use
  Company Number: IL-UCBSA-040768

PATIENT
  Age: 72 Year
  Sex: Female

DRUGS (3)
  1. NITROGLYCERIN [Suspect]
     Dosage: DOSE REDUCED
     Route: 042
  2. NITROGLYCERIN [Suspect]
     Dosage: 0.4 MG/MIN
     Route: 042
  3. NITROGLYCERIN [Suspect]
     Indication: HYPERTENSION
     Dosage: 0.05-0.1 MG/MIN
     Route: 042

REACTIONS (1)
  - HYPERTENSION [None]
